FAERS Safety Report 6213831-2 (Version None)
Quarter: 2009Q2

REPORT INFORMATION
  Report Type: 
  Country: None (occurrence: None)
  Receive Date: 20090604
  Receipt Date: 20090602
  Transmission Date: 20091009
  Serious: Yes (Death)
  Sender: FDA-Public Use
  Company Number: US-ASTRAZENECA-2009UW03574

PATIENT
  Age: 25685 Day
  Sex: Male
  Weight: 90.7 kg

DRUGS (5)
  1. SEROQUEL [Suspect]
     Indication: PARKINSON'S DISEASE
     Route: 048
     Dates: start: 20031101, end: 20060214
  2. SEROQUEL [Suspect]
     Indication: DEMENTIA ALZHEIMER'S TYPE
     Route: 048
     Dates: start: 20031101, end: 20060214
  3. CLOZARIL [Concomitant]
     Dates: start: 20060301, end: 20070724
  4. HALDOL [Concomitant]
     Dates: start: 20030401
  5. ZYPREXA [Concomitant]
     Dates: start: 20041101

REACTIONS (3)
  - CARDIAC DISORDER [None]
  - DEATH [None]
  - DIABETES MELLITUS [None]
